FAERS Safety Report 15492156 (Version 3)
Quarter: 2018Q4

REPORT INFORMATION
  Report Type: Report from Study
  Country: FR (occurrence: FR)
  Receive Date: 20181012
  Receipt Date: 20181102
  Transmission Date: 20190205
  Serious: Yes (Hospitalization, Other)
  Sender: FDA-Public Use
  Company Number: FR-ASTRAZENECA-2018SF24448

PATIENT
  Age: 789 Month
  Sex: Male
  Weight: 76 kg

DRUGS (6)
  1. ATORVASTATIN [Concomitant]
     Active Substance: ATORVASTATIN
     Indication: BLOOD CHOLESTEROL
     Route: 048
     Dates: start: 2013
  2. RESPIMAT [Concomitant]
     Indication: RESPIRATORY FAILURE
     Dosage: 5UG/DOSE TWO ON MORNING
     Route: 048
     Dates: start: 201804
  3. DURVALUMAB. [Suspect]
     Active Substance: DURVALUMAB
     Indication: NON-SMALL CELL LUNG CANCER
     Route: 042
     Dates: start: 20180913, end: 20180927
  4. KARDEGIC [Concomitant]
     Active Substance: ASPIRIN DL-LYSINE
     Indication: ANTICOAGULANT THERAPY
     Route: 048
     Dates: start: 2013
  5. METOPROLOL. [Concomitant]
     Active Substance: METOPROLOL
     Indication: MYOCARDIAL INFARCTION
     Route: 048
     Dates: start: 201711
  6. SYMBICORT [Concomitant]
     Active Substance: BUDESONIDE\FORMOTEROL FUMARATE DIHYDRATE
     Indication: RESPIRATORY FAILURE
     Dosage: 400/12 UG
     Route: 048
     Dates: start: 201804

REACTIONS (9)
  - Dyspnoea [Not Recovered/Not Resolved]
  - Pyrexia [Not Recovered/Not Resolved]
  - Tension [Unknown]
  - Cough [Not Recovered/Not Resolved]
  - Lung infection [Recovered/Resolved]
  - Chills [Not Recovered/Not Resolved]
  - Tachycardia [Unknown]
  - Oxygen saturation decreased [Not Recovered/Not Resolved]
  - Livedo reticularis [Unknown]

NARRATIVE: CASE EVENT DATE: 20180913
